FAERS Safety Report 24181563 (Version 3)
Quarter: 2024Q4

REPORT INFORMATION
  Report Type: Spontaneous
  Country: US (occurrence: US)
  Receive Date: 20240807
  Receipt Date: 20241210
  Transmission Date: 20250115
  Serious: No
  Sender: TEVA
  Company Number: US-TEVA-VS-3226201

PATIENT
  Age: 81 Year
  Sex: Female
  Weight: 89 kg

DRUGS (3)
  1. AUSTEDO [Suspect]
     Active Substance: DEUTETRABENAZINE
     Indication: Tardive dyskinesia
     Dosage: 6 MG IN THE MORNING+ 9 MG AT NIGHT DAILY  (NOT TAKEN IN EQUAL DOSES)
     Route: 065
  2. AUSTEDO [Suspect]
     Active Substance: DEUTETRABENAZINE
     Indication: Tardive dyskinesia
     Dosage: 6 MG IN THE MORNING + 12 MG AT NIGHT
     Route: 065
  3. AUSTEDO [Suspect]
     Active Substance: DEUTETRABENAZINE
     Indication: Tardive dyskinesia
     Dosage: INSTRUCTED THE PATIENT TO TAKE AUSTEDO 9 MG IN THE MORNING AND AUSTEDO 6 MG AT NIGHT DAILY
     Route: 065

REACTIONS (7)
  - Fatigue [Not Recovered/Not Resolved]
  - Drug titration error [Unknown]
  - Tremor [Unknown]
  - Somnolence [Unknown]
  - Tension [Unknown]
  - Initial insomnia [Unknown]
  - Product use issue [Unknown]
